FAERS Safety Report 5429517-8 (Version None)
Quarter: 2007Q3

REPORT INFORMATION
  Report Type: 
  Country: None (occurrence: None)
  Receive Date: 20070829
  Receipt Date: 20070823
  Transmission Date: 20080115
  Serious: Yes (Hospitalization)
  Sender: FDA-Public Use
  Company Number: BR-JNJFOC-20070603775

PATIENT
  Sex: Male
  Weight: 59 kg

DRUGS (1)
  1. RISPERDAL CONSTA [Suspect]
     Indication: DRUG USE FOR UNKNOWN INDICATION
     Route: 030

REACTIONS (6)
  - AGGRESSION [None]
  - DELUSION [None]
  - DIARRHOEA [None]
  - HALLUCINATION, AUDITORY [None]
  - PSYCHOMOTOR HYPERACTIVITY [None]
  - VOMITING [None]
